FAERS Safety Report 12692841 (Version 2)
Quarter: 2016Q3

REPORT INFORMATION
  Report Type: Spontaneous
  Country: US (occurrence: US)
  Receive Date: 20160829
  Receipt Date: 20160830
  Transmission Date: 20161109
  Serious: No
  Sender: FDA-Public Use
  Company Number: US-BAYER-2016-159488

PATIENT
  Sex: Female
  Weight: 65.76 kg

DRUGS (2)
  1. BISACODYL. [Concomitant]
     Active Substance: BISACODYL
     Dosage: UNK
  2. MIRALAX [Suspect]
     Active Substance: POLYETHYLENE GLYCOL 3350
     Indication: COLONOSCOPY
     Dosage: UNK
     Route: 048

REACTIONS (2)
  - Wrong technique in product usage process [None]
  - Off label use [None]
